FAERS Safety Report 6024543-2 (Version None)
Quarter: 2008Q4

REPORT INFORMATION
  Report Type: 
  Country: None (occurrence: None)
  Receive Date: 20081231
  Receipt Date: 20081107
  Transmission Date: 20090506
  Serious: No
  Sender: FDA-Public Use
  Company Number: US-BRISTOL-MYERS SQUIBB COMPANY-14369797

PATIENT
  Age: 47 Year
  Sex: Female
  Weight: 67 kg

DRUGS (4)
  1. ORENCIA [Suspect]
     Indication: RHEUMATOID ARTHRITIS
  2. METHOTREXATE [Concomitant]
  3. IBUPROFEN TABLETS [Concomitant]
  4. ULTRACET [Concomitant]

REACTIONS (1)
  - DRUG INEFFECTIVE [None]
